FAERS Safety Report 6195021-5 (Version None)
Quarter: 2009Q2

REPORT INFORMATION
  Report Type: 
  Country: None (occurrence: None)
  Receive Date: 20090519
  Receipt Date: 20090512
  Transmission Date: 20091009
  Serious: Yes (Other)
  Sender: FDA-Public Use
  Company Number: B0569883A

PATIENT
  Age: 46 Year
  Sex: Female

DRUGS (1)
  1. CLENIL MODULITE [Suspect]
     Indication: DRUG USE FOR UNKNOWN INDICATION
     Dosage: 400MCG PER DAY
     Route: 055
     Dates: start: 20090106, end: 20090305

REACTIONS (1)
  - DYSGEUSIA [None]
